FAERS Safety Report 4947104-2 (Version None)
Quarter: 2006Q1

REPORT INFORMATION
  Report Type: 
  Country: None (occurrence: None)
  Receive Date: 20060314
  Receipt Date: 20060223
  Transmission Date: 20060701
  Serious: Yes (Other)
  Sender: FDA-Public Use
  Company Number: US200602003852

PATIENT
  Age: 12 Year
  Sex: Female

DRUGS (2)
  1. HUMATROPE [Suspect]
     Indication: GROWTH HORMONE DEFICIENCY
     Dosage: 2.8 MG, SUBUCTANEOUS
     Route: 058
     Dates: start: 20050101
  2. HUMATROPEN (HUMATROPEN) PEN, REUSABLE [Concomitant]

REACTIONS (4)
  - ASTHENIA [None]
  - CONVULSION [None]
  - DIZZINESS [None]
  - HEADACHE [None]
